FAERS Safety Report 24637905 (Version 1)
Quarter: 2024Q4

REPORT INFORMATION
  Report Type: Spontaneous
  Country: US (occurrence: US)
  Receive Date: 20241119
  Receipt Date: 20241119
  Transmission Date: 20250114
  Serious: Yes (Hospitalization, Other)
  Sender: CIPLA
  Company Number: US-MLMSERVICE-20241104-PI244293-00034-2

PATIENT

DRUGS (33)
  1. HYDRALAZINE [Suspect]
     Active Substance: HYDRALAZINE HYDROCHLORIDE
     Indication: Product used for unknown indication
     Dosage: UNK
     Route: 042
     Dates: start: 202307, end: 202307
  2. HYDRALAZINE [Suspect]
     Active Substance: HYDRALAZINE HYDROCHLORIDE
     Dosage: UNK
     Route: 048
     Dates: start: 202307, end: 202307
  3. HALOPERIDOL [Suspect]
     Active Substance: HALOPERIDOL
     Indication: Product used for unknown indication
     Dosage: UNK
     Route: 042
     Dates: start: 202307, end: 202307
  4. AMIODARONE [Suspect]
     Active Substance: AMIODARONE
     Indication: Product used for unknown indication
     Dosage: UNK
     Route: 065
     Dates: start: 2023, end: 202307
  5. ALLOPURINOL [Suspect]
     Active Substance: ALLOPURINOL
     Indication: Product used for unknown indication
     Dosage: UNK
     Route: 065
     Dates: start: 2023, end: 202307
  6. VANCOMYCIN [Concomitant]
     Active Substance: VANCOMYCIN
     Indication: Product used for unknown indication
     Dosage: UNK
     Route: 065
     Dates: start: 2023, end: 202307
  7. TICAGRELOR [Concomitant]
     Active Substance: TICAGRELOR
     Indication: Product used for unknown indication
     Dosage: UNK
     Route: 065
     Dates: start: 2023, end: 2023
  8. PROPRANOLOL [Concomitant]
     Active Substance: PROPRANOLOL HYDROCHLORIDE
     Indication: Product used for unknown indication
     Dosage: UNK
     Route: 065
     Dates: start: 202307, end: 202307
  9. PROCAINAMIDE HYDROCHLORIDE [Concomitant]
     Active Substance: PROCAINAMIDE HYDROCHLORIDE
     Indication: Product used for unknown indication
     Dosage: UNK
     Route: 065
     Dates: start: 202307, end: 202307
  10. PIPERACILLIN SODIUM\TAZOBACTAM SODIUM [Concomitant]
     Active Substance: PIPERACILLIN SODIUM\TAZOBACTAM SODIUM
     Indication: Product used for unknown indication
     Dosage: UNK
     Route: 065
     Dates: start: 202307, end: 202307
  11. ONDANSETRON [Concomitant]
     Active Substance: ONDANSETRON
     Indication: Product used for unknown indication
     Dosage: UNK
     Route: 065
     Dates: start: 202307, end: 202307
  12. NOREPINEPHRINE [Concomitant]
     Active Substance: NOREPINEPHRINE\NOREPINEPHRINE BITARTRATE
     Indication: Product used for unknown indication
     Dosage: UNK
     Route: 065
     Dates: start: 2023, end: 202307
  13. NICARDIPINE [Concomitant]
     Active Substance: NICARDIPINE
     Indication: Product used for unknown indication
     Dosage: UNK
     Route: 065
     Dates: start: 202307, end: 202307
  14. MILRINONE [Concomitant]
     Active Substance: MILRINONE
     Indication: Product used for unknown indication
     Dosage: UNK
     Route: 065
     Dates: start: 2023, end: 202307
  15. MIDAZOLAM [Concomitant]
     Active Substance: MIDAZOLAM
     Indication: Product used for unknown indication
     Dosage: UNK
     Route: 065
     Dates: start: 2023, end: 202307
  16. MEXILETINE [Concomitant]
     Active Substance: MEXILETINE
     Indication: Product used for unknown indication
     Dosage: UNK
     Route: 065
     Dates: start: 202307, end: 202307
  17. METOLAZONE [Concomitant]
     Active Substance: METOLAZONE
     Indication: Product used for unknown indication
     Dosage: UNK
     Route: 065
     Dates: start: 202307, end: 202307
  18. METOCLOPRAMIDE [Concomitant]
     Active Substance: METOCLOPRAMIDE
     Indication: Product used for unknown indication
     Dosage: UNK
     Route: 065
     Dates: start: 202307, end: 202307
  19. IVERMECTIN [Concomitant]
     Active Substance: IVERMECTIN
     Indication: Product used for unknown indication
     Dosage: UNK
     Route: 065
     Dates: start: 202307, end: 202307
  20. IPRATROPIUM [Concomitant]
     Active Substance: IPRATROPIUM
     Indication: Product used for unknown indication
     Dosage: UNK
     Route: 065
     Dates: start: 202307, end: 202307
  21. HYDROMORPHONE [Concomitant]
     Active Substance: HYDROMORPHONE
     Indication: Product used for unknown indication
     Dosage: UNK
     Route: 042
     Dates: start: 2023, end: 202307
  22. FUROSEMIDE [Concomitant]
     Active Substance: FUROSEMIDE
     Indication: Product used for unknown indication
     Dosage: UNK
     Route: 065
     Dates: start: 2023, end: 202307
  23. FENTANYL [Concomitant]
     Active Substance: FENTANYL
     Indication: Product used for unknown indication
     Dosage: UNK
     Route: 065
     Dates: start: 2023, end: 202307
  24. FAMOTIDINE [Concomitant]
     Active Substance: FAMOTIDINE
     Indication: Product used for unknown indication
     Dosage: UNK
     Route: 042
     Dates: start: 2023, end: 202307
  25. ESMOLOL [Concomitant]
     Active Substance: ESMOLOL HYDROCHLORIDE
     Indication: Product used for unknown indication
     Dosage: UNK
     Route: 065
     Dates: start: 202307, end: 202307
  26. EPOETIN ALFA [Concomitant]
     Active Substance: ERYTHROPOIETIN
     Indication: Product used for unknown indication
     Dosage: UNK
     Route: 065
     Dates: start: 202307, end: 202307
  27. DIPHENHYDRAMINE [Concomitant]
     Active Substance: DIPHENHYDRAMINE
     Indication: Product used for unknown indication
     Dosage: UNK
     Route: 065
     Dates: start: 202307, end: 202307
  28. DIGOXIN [Concomitant]
     Active Substance: DIGOXIN
     Indication: Product used for unknown indication
     Dosage: UNK
     Route: 042
     Dates: start: 202307, end: 202307
  29. CEFEPIME [Concomitant]
     Active Substance: CEFEPIME HYDROCHLORIDE
     Indication: Product used for unknown indication
     Dosage: UNK
     Route: 065
     Dates: start: 2023, end: 2023
  30. CANGRELOR [Concomitant]
     Active Substance: CANGRELOR
     Indication: Product used for unknown indication
     Dosage: UNK
     Route: 065
     Dates: start: 2023, end: 202307
  31. ASPIRIN [Concomitant]
     Active Substance: ASPIRIN
     Indication: Product used for unknown indication
     Dosage: UNK
     Route: 065
     Dates: start: 2023, end: 202307
  32. ACETAMINOPHEN [Concomitant]
     Active Substance: ACETAMINOPHEN
     Indication: Product used for unknown indication
     Dosage: UNK
     Route: 065
     Dates: start: 202307, end: 202307
  33. ACETAZOLAMIDE [Concomitant]
     Active Substance: ACETAZOLAMIDE
     Indication: Product used for unknown indication
     Dosage: UNK
     Route: 042
     Dates: start: 2023, end: 202307

REACTIONS (1)
  - Stevens-Johnson syndrome [Unknown]

NARRATIVE: CASE EVENT DATE: 20230701
